FAERS Safety Report 22063598 (Version 2)
Quarter: 2024Q2

REPORT INFORMATION
  Report Type: Spontaneous
  Country: JP (occurrence: JP)
  Receive Date: 20230306
  Receipt Date: 20240513
  Transmission Date: 20240716
  Serious: Yes (Other)
  Sender: FDA-Public Use
  Company Number: JP-GILEAD-2023-0618382

PATIENT
  Age: 72 Year
  Sex: Male

DRUGS (4)
  1. VEMLIDY [Suspect]
     Active Substance: TENOFOVIR ALAFENAMIDE FUMARATE
     Indication: Chronic hepatitis B
     Dosage: UNK
     Route: 048
  2. DESLORATADINE [Concomitant]
     Active Substance: DESLORATADINE
     Indication: Dermatitis atopic
     Dosage: UNK
     Route: 048
  3. VOALLA [Concomitant]
     Indication: Dermatitis atopic
     Dosage: UNK
     Route: 062
  4. HEPARINOID [Concomitant]
     Indication: Dermatitis atopic
     Dosage: UNK
     Route: 062

REACTIONS (2)
  - Dermatitis exfoliative generalised [Unknown]
  - Drug eruption [Recovering/Resolving]
